FAERS Safety Report 15979247 (Version 1)
Quarter: 2019Q1

REPORT INFORMATION
  Report Type: Spontaneous
  Country: US (occurrence: US)
  Receive Date: 20190124
  Receipt Date: 20190124
  Transmission Date: 20190418
  Serious: No
  Sender: FDA-Public Use
  Company Number: None

PATIENT
  Age: 69 Year
  Sex: Female

DRUGS (1)
  1. FORTEO [Suspect]
     Active Substance: TERIPARATIDE
     Indication: SENILE OSTEOPOROSIS
     Dosage: STRENGTH 250 MCG/ML
     Route: 058
     Dates: start: 20180122

REACTIONS (5)
  - Diarrhoea [None]
  - Therapy cessation [None]
  - Drug eruption [None]
  - Device allergy [None]
  - Weight decreased [None]

NARRATIVE: CASE EVENT DATE: 20181209
